FAERS Safety Report 6023212-2 (Version None)
Quarter: 2008Q4

REPORT INFORMATION
  Report Type: 
  Country: None (occurrence: None)
  Receive Date: 20081230
  Receipt Date: 20081223
  Transmission Date: 20090506
  Serious: Yes (Life-Threatening, Hospitalization)
  Sender: FDA-Public Use
  Company Number: NO-ABBOTT-08P-122-0488835-00

PATIENT
  Sex: Female

DRUGS (4)
  1. HUMIRA [Suspect]
     Indication: CROHN'S DISEASE
     Dosage: ONLY 1 DOSE GIVEN
     Route: 058
     Dates: start: 20081101, end: 20081107
  2. HUMIRA [Suspect]
     Indication: FISTULA
     Route: 058
  3. IMUREL [Suspect]
     Indication: CROHN'S DISEASE
     Dosage: STARTING DOSE
     Dates: start: 20081101
  4. IMUREL [Suspect]

REACTIONS (4)
  - PYELONEPHRITIS [None]
  - RASH MACULAR [None]
  - RENAL FAILURE ACUTE [None]
  - TUBULOINTERSTITIAL NEPHRITIS [None]
